FAERS Safety Report 7712350-1 (Version None)
Quarter: 2011Q3

REPORT INFORMATION
  Report Type: 
  Country: None (occurrence: None)
  Receive Date: 20110826
  Receipt Date: 20110823
  Transmission Date: 20111222
  Serious: Yes (Hospitalization)
  Sender: FDA-Public Use
  Company Number: CO-ROCHE-788742

PATIENT
  Sex: Female

DRUGS (3)
  1. ACTEMRA [Suspect]
     Route: 042
     Dates: start: 20110503
  2. ACTEMRA [Suspect]
     Indication: RHEUMATOID ARTHRITIS
     Route: 042
     Dates: start: 20091218
  3. ACTEMRA [Suspect]
     Route: 042
     Dates: start: 20101218

REACTIONS (1)
  - ACUTE MYOCARDIAL INFARCTION [None]
